FAERS Safety Report 6190294-7 (Version None)
Quarter: 2009Q2

REPORT INFORMATION
  Report Type: 
  Country: None (occurrence: None)
  Receive Date: 20090514
  Receipt Date: 20090505
  Transmission Date: 20091009
  Serious: Yes (Death)
  Sender: FDA-Public Use
  Company Number: A0782558A

PATIENT
  Sex: Male

DRUGS (3)
  1. AVANDIA [Suspect]
     Indication: DRUG USE FOR UNKNOWN INDICATION
     Route: 065
  2. LANOXIN [Concomitant]
  3. COREG [Concomitant]

REACTIONS (1)
  - DEATH [None]
